FAERS Safety Report 5898469-9 (Version None)
Quarter: 2008Q3

REPORT INFORMATION
  Report Type: 
  Country: None (occurrence: None)
  Receive Date: 20080925
  Receipt Date: 20071129
  Transmission Date: 20090109
  Serious: No
  Sender: FDA-Public Use
  Company Number: A0695456A

PATIENT
  Age: 32 Year
  Sex: Female
  Weight: 58.2 kg

DRUGS (1)
  1. WELLBUTRIN XL [Suspect]
     Indication: POSTPARTUM DEPRESSION
     Dosage: 150MG PER DAY
     Route: 048
     Dates: start: 20070301, end: 20071001

REACTIONS (6)
  - ANOREXIA [None]
  - DEHYDRATION [None]
  - FATIGUE [None]
  - HAEMATOCRIT INCREASED [None]
  - HAEMOGLOBIN INCREASED [None]
  - WEIGHT DECREASED [None]
